FAERS Safety Report 5837571-4 (Version None)
Quarter: 2008Q3

REPORT INFORMATION
  Report Type: 
  Country: None (occurrence: None)
  Receive Date: 20080807
  Receipt Date: 20080728
  Transmission Date: 20090109
  Serious: Yes (Other)
  Sender: FDA-Public Use
  Company Number: ES-PFIZER INC-2008065010

PATIENT
  Age: 13 Year
  Sex: Female

DRUGS (6)
  1. NELFINAVIR MESILATE [Suspect]
     Indication: HIV INFECTION
     Dates: start: 19970101, end: 20010101
  2. LAMIVUDINE [Suspect]
     Indication: HIV INFECTION
     Dates: start: 19970101, end: 20010101
  3. STAVUDINE [Suspect]
     Indication: HIV INFECTION
     Dates: start: 19970101, end: 20050101
  4. DIDANOSINE [Suspect]
     Indication: HIV INFECTION
  5. ABACAVIR [Suspect]
     Indication: HIV INFECTION
  6. EFAVIRENZ [Suspect]
     Indication: HIV INFECTION

REACTIONS (1)
  - LIPODYSTROPHY ACQUIRED [None]
